FAERS Safety Report 4483900-6 (Version None)
Quarter: 2004Q4

REPORT INFORMATION
  Report Type: 
  Country: None (occurrence: None)
  Receive Date: 20041021
  Receipt Date: 20041021
  Transmission Date: 20050328
  Serious: Yes (Other)
  Sender: FDA-Public Use
  Company Number: None

PATIENT
  Sex: Female
  Weight: 54.4316 kg

DRUGS (2)
  1. MS CONTIN [Suspect]
     Indication: ARTHRALGIA
     Dosage: 60 MG Q 8 HRS
     Dates: start: 20020801
  2. MS CONTIN [Suspect]
     Indication: ASEPTIC NECROSIS BONE
     Dosage: 60 MG Q 8 HRS
     Dates: start: 20020801

REACTIONS (2)
  - DRUG INEFFECTIVE [None]
  - PHARMACEUTICAL PRODUCT COMPLAINT [None]
